FAERS Safety Report 4860600-1 (Version None)
Quarter: 2005Q4

REPORT INFORMATION
  Report Type: 
  Country: None (occurrence: None)
  Receive Date: 20051219
  Receipt Date: 20050706
  Transmission Date: 20060501
  Serious: Yes (Other)
  Sender: FDA-Public Use
  Company Number: US-MERCK-0507USA00554

PATIENT
  Age: 77 Year
  Sex: Female
  Weight: 82 kg

DRUGS (6)
  1. VIOXX [Suspect]
     Indication: PAIN IN EXTREMITY
     Route: 048
     Dates: end: 20040901
  2. LIPITOR [Concomitant]
     Route: 065
  3. TOPROL-XL [Concomitant]
     Route: 065
  4. TAZTIA XT [Concomitant]
     Route: 065
  5. CYCLOBENZAPRINE HYDROCHLORIDE [Concomitant]
     Route: 048
  6. TRAMADOL HYDROCHLORIDE [Concomitant]
     Route: 065

REACTIONS (6)
  - DIZZINESS [None]
  - HAEMORRHAGIC STROKE [None]
  - POLYNEUROPATHY [None]
  - VERTIGO [None]
  - VITREOUS FLOATERS [None]
  - VOMITING [None]
